FAERS Safety Report 7075328-X (Version None)
Quarter: 2010Q4

REPORT INFORMATION
  Report Type: 
  Country: None (occurrence: None)
  Receive Date: 20101030
  Receipt Date: 20100830
  Transmission Date: 20110411
  Serious: No
  Sender: FDA-Public Use
  Company Number: US-WYE-H17301510

PATIENT

DRUGS (2)
  1. TYGACIL [Suspect]
     Indication: DIABETIC FOOT
     Dosage: UNKNOWN
     Route: 065
  2. TYGACIL [Suspect]
     Indication: WOUND INFECTION STAPHYLOCOCCAL

REACTIONS (1)
  - PATHOGEN RESISTANCE [None]
